FAERS Safety Report 17912054 (Version 1)
Quarter: 2020Q2

REPORT INFORMATION
  Report Type: Spontaneous
  Country: US (occurrence: US)
  Receive Date: 20200618
  Receipt Date: 20200618
  Transmission Date: 20200714
  Serious: Yes (Death, Other)
  Sender: FDA-Public Use
  Company Number: US-CATALYST PHARMACEUTICALS, INC-2020CAT00276

PATIENT
  Age: 72 Year
  Sex: Male

DRUGS (2)
  1. FIRDAPSE [Suspect]
     Active Substance: AMIFAMPRIDINE
     Indication: MYASTHENIC SYNDROME
     Dosage: 80 MG TOTAL DAILY
     Route: 048
  2. FIRDAPSE [Suspect]
     Active Substance: AMIFAMPRIDINE
     Dosage: 80 MG TOTAL DAILY
     Route: 048
     Dates: start: 202005

REACTIONS (4)
  - Hypoxia [Unknown]
  - Insomnia [Unknown]
  - Diaphragmatic disorder [Unknown]
  - Death [Fatal]

NARRATIVE: CASE EVENT DATE: 20200521
